FAERS Safety Report 20980605 (Version 1)
Quarter: 2022Q2

REPORT INFORMATION
  Report Type: Spontaneous
  Country: IN (occurrence: IN)
  Receive Date: 20220620
  Receipt Date: 20220620
  Transmission Date: 20220721
  Serious: No
  Sender: FDA-Public Use
  Company Number: IN-ALKEM LABORATORIES LIMITED-IN-ALKEM-2022-03145

PATIENT
  Age: 40 Year
  Sex: Male

DRUGS (2)
  1. SILDENAFIL [Suspect]
     Active Substance: SILDENAFIL
     Indication: Erectile dysfunction
     Dosage: 8-9 TABLETS (100 MG, EACH) PER OCCASION
     Route: 065
  2. SILDENAFIL [Suspect]
     Active Substance: SILDENAFIL
     Dosage: 1300 MG PER OCCASION
     Route: 065

REACTIONS (3)
  - Intentional product misuse [Unknown]
  - Overdose [Unknown]
  - Vision blurred [Unknown]
